FAERS Safety Report 5623936-2 (Version None)
Quarter: 2008Q1

REPORT INFORMATION
  Report Type: 
  Country: None (occurrence: None)
  Receive Date: 20080207
  Receipt Date: 20080129
  Transmission Date: 20080703
  Serious: Yes (Other)
  Sender: FDA-Public Use
  Company Number: 2008-00525

PATIENT
  Age: 64 Year
  Sex: Male

DRUGS (1)
  1. TRELSTAR [Suspect]
     Indication: PROSTATE CANCER
     Dosage: 11.25MG, Q 3 MONTHS, INTRAMUSCULAR
     Route: 030
     Dates: start: 20060327, end: 20071105

REACTIONS (3)
  - ANGIOEDEMA [None]
  - CHILLS [None]
  - HOT FLUSH [None]
